FAERS Safety Report 16533331 (Version 2)
Quarter: 2019Q3

REPORT INFORMATION
  Report Type: Spontaneous
  Country: US (occurrence: US)
  Receive Date: 20190705
  Receipt Date: 20190718
  Transmission Date: 20191004
  Serious: Yes (Other)
  Sender: FDA-Public Use
  Company Number: US-ELI_LILLY_AND_COMPANY-US201907001342

PATIENT
  Sex: Male

DRUGS (4)
  1. CIALIS [Suspect]
     Active Substance: TADALAFIL
     Indication: ERECTILE DYSFUNCTION
     Dosage: 2.5 UNK
     Route: 065
     Dates: start: 200901, end: 200912
  2. VIAGRA [Suspect]
     Active Substance: SILDENAFIL CITRATE
     Indication: ERECTILE DYSFUNCTION
     Dosage: 100 UNK
     Route: 065
     Dates: start: 199801, end: 199812
  3. VIAGRA [Suspect]
     Active Substance: SILDENAFIL CITRATE
     Dosage: 100 MG, UNKNOWN
     Dates: start: 20120119, end: 201712
  4. LEVITRA [Concomitant]
     Active Substance: VARDENAFIL HYDROCHLORIDE
     Indication: ERECTILE DYSFUNCTION
     Dosage: UNK UNK, MONTHLY (1/M)
     Dates: start: 201706

REACTIONS (10)
  - Malignant melanoma [Unknown]
  - Basal cell carcinoma [Unknown]
  - Hypersensitivity [Unknown]
  - Herpes virus infection [Recovered/Resolved]
  - Gastrooesophageal reflux disease [Unknown]
  - Osteopenia [Unknown]
  - Squamous cell carcinoma [Recovered/Resolved]
  - Thrombocytosis [Unknown]
  - Chronic obstructive pulmonary disease [Unknown]
  - Blood cholesterol [Recovered/Resolved]

NARRATIVE: CASE EVENT DATE: 2009
